FAERS Safety Report 9311778 (Version 1)
Quarter: 2013Q2

REPORT INFORMATION
  Report Type: Spontaneous
  Country: US (occurrence: US)
  Receive Date: 20130524
  Receipt Date: 20130524
  Transmission Date: 20140414
  Serious: Yes (Other)
  Sender: FDA-Public Use
  Company Number: US-RB-054172-13

PATIENT
  Age: 0 None
  Sex: Male

DRUGS (2)
  1. SUBOXONE TABLET [Suspect]
     Indication: DRUG DEPENDENCE
     Dosage: 24-32 MG DAILY
     Route: 064
     Dates: start: 201007, end: 20110303
  2. NICOTINE [Suspect]
     Indication: NICOTINE DEPENDENCE
     Dosage: 1 AND A HALF PACKS OF CIGARETTES DAILY
     Route: 064
     Dates: start: 201007, end: 20110303

REACTIONS (3)
  - Foetal exposure during pregnancy [Recovered/Resolved]
  - Premature baby [Recovered/Resolved]
  - Low birth weight baby [Recovered/Resolved]
